FAERS Safety Report 24257302 (Version 2)
Quarter: 2024Q3

REPORT INFORMATION
  Report Type: Spontaneous
  Country: CN (occurrence: CN)
  Receive Date: 20240828
  Receipt Date: 20240925
  Transmission Date: 20241017
  Serious: Yes (Other)
  Sender: SANOFI AVENTIS
  Company Number: CN-SA-2024SA245800

PATIENT
  Age: 34 Year
  Sex: Female

DRUGS (8)
  1. ANTI-THYMOCYTE GLOBULIN (RABBIT) NOS [Suspect]
     Active Substance: LAPINE T-LYMPHOCYTE IMMUNE GLOBULIN
     Indication: Acute myelomonocytic leukaemia
     Dosage: 75 MG (-6, -5, -4 DAYS)
     Dates: start: 2021, end: 2021
  2. ANTI-THYMOCYTE GLOBULIN (RABBIT) NOS [Suspect]
     Active Substance: LAPINE T-LYMPHOCYTE IMMUNE GLOBULIN
     Dosage: 100 MG (-3 DAYS)
     Dates: start: 2021, end: 2021
  3. CYCLOPHOSPHAMIDE [Suspect]
     Active Substance: CYCLOPHOSPHAMIDE
     Indication: Acute myelomonocytic leukaemia
     Dosage: 2.4 G (-6, -5 DAYS)
     Dates: start: 2021, end: 2021
  4. CYTARABINE [Concomitant]
     Active Substance: CYTARABINE
     Indication: Acute myelomonocytic leukaemia
     Dosage: 1.5 G/M2, Q12H ON DAYS 1 TO 3 WAS USED FOR TREATMENT FOR 3 COURSES (MEDIUM-DOSE)
     Dates: start: 2021, end: 2021
  5. CYTARABINE [Concomitant]
     Active Substance: CYTARABINE
     Dosage: 2.7 G, Q12H (-11, -10 DAYS)
     Dates: start: 20211116
  6. CYTARABINE;DEXAMETHASONE [Concomitant]
     Indication: Leukaemia
     Dosage: CYTARABINE 50 MG + DEXAMETHASONE 5 MG
     Route: 037
     Dates: start: 2021
  7. BUSULFAN [Concomitant]
     Active Substance: BUSULFAN
     Indication: Acute myelomonocytic leukaemia
     Dosage: 30 MG, Q6H (-9, -8, -7 DAYS)
     Dates: start: 2021, end: 2021
  8. MUSTINE [CHLORMETHINE] [Concomitant]
     Indication: Acute myelomonocytic leukaemia
     Dosage: 350 MG (-3 DAYS)
     Dates: start: 2021, end: 2021

REACTIONS (8)
  - Capillary leak syndrome [Recovered/Resolved]
  - Chest discomfort [Recovered/Resolved]
  - Palpitations [Recovered/Resolved]
  - Dyspnoea [Recovered/Resolved]
  - Oedema peripheral [Recovered/Resolved]
  - Pleural effusion [Recovered/Resolved]
  - Atelectasis [Recovered/Resolved]
  - Pericardial effusion [Recovered/Resolved]

NARRATIVE: CASE EVENT DATE: 20210101
